FAERS Safety Report 19611075 (Version 1)
Quarter: 2021Q3

REPORT INFORMATION
  Report Type: Spontaneous
  Country: GB (occurrence: GB)
  Receive Date: 20210726
  Receipt Date: 20210726
  Transmission Date: 20211014
  Serious: Yes (Other)
  Sender: FDA-Public Use
  Company Number: GB-MYLANLABS-2021M1045538

PATIENT
  Age: 32 Year
  Sex: Female
  Weight: 60 kg

DRUGS (5)
  1. DIAZEPAM. [Concomitant]
     Active Substance: DIAZEPAM
     Dosage: 1 DOSAGE FORM, PRN (AS DIRECTED ONLY WHEN ABSOLUTELY NECESSARY)
     Dates: start: 20210519, end: 20210602
  2. EPIDUO [Concomitant]
     Active Substance: ADAPALENE\BENZOYL PEROXIDE
     Dosage: 1 DOSAGE FORM, QD (APPLY TO AFFECTED AREAS AS PER DERMATOLOGY)
     Route: 061
     Dates: start: 20210623
  3. DERMOL                             /01330701/ [Concomitant]
     Dosage: UNK (USE AS SOAP SUBSTITUTE ALTERNATING WITH HIBISCRUB  )
     Dates: start: 20210623, end: 20210707
  4. SERTRALINE [Suspect]
     Active Substance: SERTRALINE HYDROCHLORIDE
     Indication: PRODUCT USED FOR UNKNOWN INDICATION
     Dosage: 50 MILLIGRAM
     Dates: start: 20210719
  5. HIBISCRUB                          /00133002/ [Concomitant]
     Active Substance: CHLORHEXIDINE GLUCONATE
     Dosage: UNK (USE AS DIRECTED USE AS SOAP SUBSTITUE ALTERNATIVE)
     Dates: start: 20210623

REACTIONS (1)
  - Obsessive-compulsive disorder [Recovered/Resolved]

NARRATIVE: CASE EVENT DATE: 20210719
